FAERS Safety Report 9790341 (Version 1)
Quarter: 2013Q4

REPORT INFORMATION
  Report Type: Spontaneous
  Country: US (occurrence: US)
  Receive Date: 20131231
  Receipt Date: 20131231
  Transmission Date: 20140711
  Serious: Yes (Other)
  Sender: FDA-Public Use
  Company Number: US-ABBVIE-13P-163-1182887-00

PATIENT
  Age: 57 Year
  Sex: Female
  Weight: 79 kg

DRUGS (17)
  1. HUMIRA [Suspect]
     Indication: RHEUMATOID ARTHRITIS
     Dates: start: 2007
  2. OMEGA 3 FISH OIL [Concomitant]
     Indication: BLOOD CHOLESTEROL INCREASED
  3. CRESTOR [Concomitant]
     Indication: BLOOD CHOLESTEROL INCREASED
  4. MULTIVITAMIN [Concomitant]
     Indication: VITAMIN SUPPLEMENTATION
  5. CALCIUM [Concomitant]
     Indication: OSTEOPOROSIS
  6. VITAMIN D NOS [Concomitant]
     Indication: OSTEOPOROSIS
  7. IBUPROFEN [Concomitant]
     Indication: ARTHRALGIA
  8. PHENERGAN [Concomitant]
     Indication: ABDOMINAL DISCOMFORT
  9. ALLERGY PILLS [Concomitant]
     Indication: SEASONAL ALLERGY
  10. GLIPIZIDE [Concomitant]
     Indication: DIABETES MELLITUS
  11. KLONOPIN [Concomitant]
     Indication: ANXIETY
  12. LYRICA [Concomitant]
     Indication: NEUROPATHY PERIPHERAL
  13. QUINAPRIL [Concomitant]
     Indication: HYPERTENSION
  14. OMEPRAZOLE [Concomitant]
     Indication: GASTROOESOPHAGEAL REFLUX DISEASE
  15. FOLIC ACID [Concomitant]
     Indication: PRODUCT USED FOR UNKNOWN INDICATION
  16. VESICARE [Concomitant]
     Indication: INCONTINENCE
  17. PROVENTIL [Concomitant]
     Indication: ASTHMA

REACTIONS (2)
  - Vaginal lesion [Not Recovered/Not Resolved]
  - Precancerous cells present [Not Recovered/Not Resolved]
